FAERS Safety Report 19133615 (Version 2)
Quarter: 2021Q3

REPORT INFORMATION
  Report Type: Spontaneous
  Country: IT (occurrence: IT)
  Receive Date: 20210414
  Receipt Date: 20210930
  Transmission Date: 20211014
  Serious: Yes (Hospitalization)
  Sender: FDA-Public Use
  Company Number: IT-LUPIN PHARMACEUTICALS INC.-2021-04423

PATIENT
  Sex: Male

DRUGS (10)
  1. FENOFIBRATE. [Suspect]
     Active Substance: FENOFIBRATE
     Indication: HYPERCHYLOMICRONAEMIA
     Dosage: 145 MILLIGRAM, QD
     Route: 065
  2. LOMITAPIDE [Concomitant]
     Active Substance: LOMITAPIDE MESYLATE
     Indication: HYPERCHYLOMICRONAEMIA
     Dosage: 5 MILLIGRAM, QD
     Route: 065
  3. VITAMIN?E [TOCOPHERYL ACETATE] [Concomitant]
     Active Substance: .ALPHA.-TOCOPHEROL ACETATE
     Indication: SUPPLEMENTATION THERAPY
     Dosage: 400 INTERNATIONAL UNIT, QD
     Route: 065
  4. LOMITAPIDE [Concomitant]
     Active Substance: LOMITAPIDE MESYLATE
     Dosage: 20 MILLIGRAM, QD
     Route: 065
  5. DOCOSAHEXAENOIC ACID [Suspect]
     Active Substance: DOCONEXENT
     Indication: HYPERCHYLOMICRONAEMIA
     Dosage: 80 MILLIGRAM, QD
     Route: 065
  6. LOMITAPIDE [Concomitant]
     Active Substance: LOMITAPIDE MESYLATE
     Dosage: 40 MILLIGRAM, QD
     Route: 065
  7. EICOSAPENTAENOIC ACID [Suspect]
     Active Substance: ICOSAPENT
     Indication: HYPERCHYLOMICRONAEMIA
     Dosage: 110 MILLIGRAM, QD
     Route: 065
  8. LINOLEIC ACID [Concomitant]
     Active Substance: LINOLEIC ACID
     Indication: SUPPLEMENTATION THERAPY
     Dosage: 200 MILLIGRAM, QD
     Route: 065
  9. LOMITAPIDE [Concomitant]
     Active Substance: LOMITAPIDE MESYLATE
     Dosage: 10 MILLIGRAM, QD
     Route: 065
  10. AMLODIPINE [Concomitant]
     Active Substance: AMLODIPINE BESYLATE
     Indication: HYPERTENSION
     Dosage: 10 MILLIGRAM, QD
     Route: 065

REACTIONS (1)
  - Drug ineffective [Unknown]
